FAERS Safety Report 9336811 (Version 1)
Quarter: 2013Q2

REPORT INFORMATION
  Report Type: Spontaneous
  Country: AU (occurrence: AU)
  Receive Date: 20130607
  Receipt Date: 20130607
  Transmission Date: 20140414
  Serious: Yes (Other)
  Sender: FDA-Public Use
  Company Number: AU-009507513-1306AUS000392

PATIENT
  Age: 69 Year
  Sex: Female
  Weight: 104 kg

DRUGS (8)
  1. TEMOZOLOMIDE [Suspect]
     Indication: GLIOBLASTOMA MULTIFORME
     Dosage: 300 MG, QD
     Route: 048
     Dates: start: 20121130, end: 20121201
  2. ASCORBIC ACID [Concomitant]
  3. BUDESONIDE (+) FORMOTEROL FUMARATE [Concomitant]
  4. CALCIUM (UNSPECIFIED) [Concomitant]
  5. ESCITALOPRAM [Concomitant]
  6. HERBAL MEDICINES [Concomitant]
  7. PARACETAMOL [Concomitant]
  8. TROPISETRON HYDROCHLORIDE [Concomitant]

REACTIONS (3)
  - Pulmonary embolism [Recovered/Resolved]
  - Rash pruritic [Recovered/Resolved]
  - Rash erythematous [Recovered/Resolved]
